FAERS Safety Report 7045738-5 (Version None)
Quarter: 2010Q4

REPORT INFORMATION
  Report Type: 
  Country: None (occurrence: None)
  Receive Date: 20101014
  Receipt Date: 20101005
  Transmission Date: 20110411
  Serious: Yes (Other)
  Sender: FDA-Public Use
  Company Number: CA-MERCK-1010USA00608

PATIENT
  Age: 55 Year
  Sex: Male

DRUGS (12)
  1. ISENTRESS [Suspect]
     Route: 048
  2. LAMIVUDINE [Concomitant]
     Route: 065
  3. ABACAVIR SULFATE [Concomitant]
     Route: 065
  4. BUPROPION HYDROCHLORIDE [Concomitant]
     Route: 065
  5. CLONAZEPAM [Concomitant]
     Route: 065
  6. DEXEDRINE [Concomitant]
     Route: 065
  7. LITHIUM CARBONATE [Concomitant]
     Route: 065
  8. LORAZEPAM [Concomitant]
     Route: 065
  9. NEVIRAPINE [Concomitant]
     Route: 065
  10. OLANZAPINE [Concomitant]
     Route: 065
  11. PAROXETINE [Suspect]
     Route: 065
  12. PREZISTA [Suspect]
     Route: 048

REACTIONS (2)
  - DEPRESSION [None]
  - DRUG INTERACTION [None]
